FAERS Safety Report 8852677 (Version 2)
Quarter: 2012Q4

REPORT INFORMATION
  Report Type: 
  Country: GR (occurrence: GR)
  Receive Date: 20121022
  Receipt Date: 20121102
  Transmission Date: 20130627
  Serious: Yes (Death, Other)
  Sender: FDA-Public Use
  Company Number: GR-PFIZER INC-2012257710

PATIENT
  Age: 63 Year
  Sex: Male

DRUGS (4)
  1. SOLU-MEDROL [Suspect]
     Indication: MICROSCOPIC POLYANGIITIS
     Dosage: 1 g, UNK
     Route: 040
  2. ENDOXAN [Suspect]
     Indication: MICROSCOPIC POLYANGIITIS
     Dosage: pulse 750g/m2
  3. PREZOLON [Concomitant]
     Indication: PROPHYLAXIS
     Dosage: 1 mg/kg, UNK
  4. ISONIAZID [Concomitant]
     Indication: PROPHYLAXIS

REACTIONS (2)
  - Septic shock [Fatal]
  - Pneumonia klebsiella [Fatal]
